FAERS Safety Report 7913353-4 (Version None)
Quarter: 2011Q4

REPORT INFORMATION
  Report Type: 
  Country: None (occurrence: None)
  Receive Date: 20111114
  Receipt Date: 20111109
  Transmission Date: 20120403
  Serious: Yes (Other)
  Sender: FDA-Public Use
  Company Number: US-GILEAD-2011-0039305

PATIENT
  Age: 30 Year
  Sex: Female

DRUGS (2)
  1. EMTRICITABINE/TENOFOVIR DISOPROXIL FUMARATE [Suspect]
     Indication: HIV INFECTION
     Dosage: UNK
     Dates: start: 20100525, end: 20110330
  2. ETHINYL ESTRADIOL W/NORGESTREL [Concomitant]
     Indication: CONTRACEPTION
     Dates: start: 20100525, end: 20110320

REACTIONS (2)
  - FOETAL EXPOSURE DURING PREGNANCY [None]
  - ABORTION SPONTANEOUS [None]
